FAERS Safety Report 6534474-7 (Version None)
Quarter: 2010Q1

REPORT INFORMATION
  Report Type: 
  Country: None (occurrence: None)
  Receive Date: 20100112
  Receipt Date: 20100107
  Transmission Date: 20100710
  Serious: Yes (Hospitalization)
  Sender: FDA-Public Use
  Company Number: GB-BRISTOL-MYERS SQUIBB COMPANY-14922041

PATIENT
  Age: 58 Year
  Sex: Female

DRUGS (8)
  1. DASATINIB [Suspect]
     Indication: CHRONIC MYELOID LEUKAEMIA
     Dosage: INTERRUPTED ON 20DEC09,RESTARTED ON 24DEC09
     Route: 048
     Dates: start: 20091124
  2. SERTRALINE HCL [Concomitant]
     Route: 048
  3. CALCICHEW [Concomitant]
     Dosage: 2DOSAGEFORM-2TABS
     Route: 048
  4. CO-CODAMOL [Concomitant]
     Dosage: 1DOSAGEFORM=30/500
     Route: 048
  5. ALLOPURINOL [Concomitant]
  6. BUTRANS [Concomitant]
     Route: 048
  7. ORAMORPH SR [Concomitant]
     Route: 048
  8. CYCLIZINE [Concomitant]
     Route: 048

REACTIONS (3)
  - ABDOMINAL DISCOMFORT [None]
  - DEHYDRATION [None]
  - DIARRHOEA [None]
